FAERS Safety Report 5044244-7 (Version None)
Quarter: 2006Q2

REPORT INFORMATION
  Report Type: 
  Country: None (occurrence: None)
  Receive Date: 20060601
  Receipt Date: 20060328
  Transmission Date: 20061013
  Serious: No
  Sender: FDA-Public Use
  Company Number: US200603006886

PATIENT
  Sex: Female

DRUGS (3)
  1. CYMBALTA [Suspect]
     Indication: ATTENTION DEFICIT/HYPERACTIVITY DISORDER
     Dosage: 30 MG, DAILY (1/D), ORAL
     Route: 048
     Dates: start: 20060208, end: 20060325
  2. PAXIL [Concomitant]
  3. LAMICTAL [Concomitant]

REACTIONS (7)
  - CSF PROTEIN INCREASED [None]
  - DRY MOUTH [None]
  - DRY THROAT [None]
  - FATIGUE [None]
  - GASTROENTERITIS VIRAL [None]
  - HEADACHE [None]
  - SINUSITIS [None]
